FAERS Safety Report 9870802 (Version 2)
Quarter: 2014Q1

REPORT INFORMATION
  Report Type: Report from Study
  Country: DE (occurrence: DE)
  Receive Date: 20140205
  Receipt Date: 20140218
  Transmission Date: 20141002
  Serious: Yes (Hospitalization, Disabling)
  Sender: FDA-Public Use
  Company Number: DE-ROCHE-1342142

PATIENT
  Age: 70 Year
  Sex: Male

DRUGS (12)
  1. TOCILIZUMAB [Suspect]
     Indication: RHEUMATOID ARTHRITIS
     Route: 042
     Dates: start: 201110, end: 201110
  2. TOCILIZUMAB [Suspect]
     Route: 042
     Dates: start: 201207
  3. PREDNISOLON [Concomitant]
     Indication: RHEUMATOID ARTHRITIS
     Route: 065
     Dates: start: 2009
  4. DELIX (GERMANY) [Concomitant]
     Route: 065
     Dates: end: 20130409
  5. DELIX (GERMANY) [Concomitant]
     Route: 065
     Dates: start: 20130410
  6. BELOC-ZOK MITE [Concomitant]
     Route: 065
  7. SIMVASTATIN [Concomitant]
     Route: 065
  8. NEXIUM [Concomitant]
     Route: 065
  9. RITUXIMAB [Concomitant]
     Route: 065
     Dates: start: 20070831, end: 20071220
  10. METHOTREXATE [Concomitant]
     Route: 065
     Dates: start: 20070903, end: 20080519
  11. ETANERCEPT [Concomitant]
     Route: 065
     Dates: start: 200805, end: 200808
  12. ETANERCEPT [Concomitant]
     Route: 065
     Dates: start: 200907, end: 201110

REACTIONS (1)
  - Myocardial infarction [Unknown]
